FAERS Safety Report 22055799 (Version 1)
Quarter: 2023Q1

REPORT INFORMATION
  Report Type: Spontaneous
  Country: US (occurrence: None)
  Receive Date: 20230302
  Receipt Date: 20230302
  Transmission Date: 20230418
  Serious: Yes (Disabling)
  Sender: FDA-Public Use
  Company Number: None

PATIENT
  Age: 28 Year
  Sex: Female
  Weight: 60.78 kg

DRUGS (1)
  1. TRELEGY ELLIPTA [Suspect]
     Active Substance: FLUTICASONE FUROATE\UMECLIDINIUM BROMIDE\VILANTEROL TRIFENATATE
     Indication: Asthma
     Dosage: OTHER FREQUENCY : ONCE IN THE MORNIN;?
     Route: 055
     Dates: start: 20221216, end: 20230113

REACTIONS (4)
  - Muscular weakness [None]
  - Gait disturbance [None]
  - Gait inability [None]
  - Cough [None]

NARRATIVE: CASE EVENT DATE: 20221216
